FAERS Safety Report 14697798 (Version 1)
Quarter: 2018Q1

REPORT INFORMATION
  Report Type: Spontaneous
  Country: US (occurrence: US)
  Receive Date: 20180330
  Receipt Date: 20180330
  Transmission Date: 20180509
  Serious: No
  Sender: FDA-Public Use
  Company Number: US-SA-2018SA016107

PATIENT
  Sex: Male

DRUGS (1)
  1. ALLEGRA ALLERGY [Suspect]
     Active Substance: FEXOFENADINE HYDROCHLORIDE
     Indication: NASOPHARYNGITIS
     Dosage: 180/240
     Route: 065
     Dates: start: 20180116, end: 20180117

REACTIONS (2)
  - Nasopharyngitis [Recovered/Resolved]
  - Malaise [Recovered/Resolved]
